FAERS Safety Report 25160352 (Version 1)
Quarter: 2025Q2

REPORT INFORMATION
  Report Type: Spontaneous
  Country: US (occurrence: US)
  Receive Date: 20250404
  Receipt Date: 20250404
  Transmission Date: 20250716
  Serious: Yes (Life-Threatening, Hospitalization)
  Sender: MYLAN
  Company Number: US-MYLANLABS-2025M1029183

PATIENT
  Age: 53 Year
  Sex: Female

DRUGS (4)
  1. NITROGLYCERIN [Suspect]
     Active Substance: NITROGLYCERIN
     Indication: Coronary artery dissection
  2. NITROGLYCERIN [Suspect]
     Active Substance: NITROGLYCERIN
     Route: 022
  3. NITROGLYCERIN [Suspect]
     Active Substance: NITROGLYCERIN
     Route: 022
  4. NITROGLYCERIN [Suspect]
     Active Substance: NITROGLYCERIN

REACTIONS (1)
  - Treatment failure [Unknown]
